FAERS Safety Report 8816506 (Version 1)
Quarter: 2012Q4

REPORT INFORMATION
  Report Type: 
  Country: GB (occurrence: None)
  Receive Date: 20120927
  Receipt Date: 20120927
  Transmission Date: 20130627
  Serious: Yes (Other)
  Sender: FDA-Public Use
  Company Number: DSM-2012-00997

PATIENT
  Age: 70 Year
  Sex: Male
  Weight: 90 kg

DRUGS (4)
  1. OLMESARTAN [Suspect]
     Route: 048
     Dates: start: 20040711
  2. ASPIRIN [Concomitant]
  3. ATENOLOL [Concomitant]
  4. ROSUVASTATIN [Concomitant]

REACTIONS (1)
  - Mycosis fungoides [None]
